FAERS Safety Report 13389774 (Version 1)
Quarter: 2017Q1

REPORT INFORMATION
  Report Type: Spontaneous
  Country: CN (occurrence: CN)
  Receive Date: 20170331
  Receipt Date: 20170331
  Transmission Date: 20170429
  Serious: Yes (Death)
  Sender: FDA-Public Use
  Company Number: CN-ACCORD-049681

PATIENT
  Sex: Male

DRUGS (2)
  1. DEXTROMETHORPHAN [Suspect]
     Active Substance: DEXTROMETHORPHAN
     Indication: NONKETOTIC HYPERGLYCINAEMIA
  2. TOPIRAMATE. [Suspect]
     Active Substance: TOPIRAMATE
     Indication: NONKETOTIC HYPERGLYCINAEMIA

REACTIONS (1)
  - Treatment failure [Fatal]
